FAERS Safety Report 8073184-4 (Version None)
Quarter: 2012Q1

REPORT INFORMATION
  Report Type: 
  Country: None (occurrence: None)
  Receive Date: 20120126
  Receipt Date: 20120116
  Transmission Date: 20120608
  Serious: Yes (Hospitalization, Other)
  Sender: FDA-Public Use
  Company Number: CA-ELI_LILLY_AND_COMPANY-CA201201004895

PATIENT
  Age: 76 Year
  Sex: Female

DRUGS (19)
  1. FORTEO [Suspect]
     Dosage: 20 UG, QD
     Route: 058
     Dates: end: 20110401
  2. TRAZODONE HCL [Concomitant]
  3. VITAMIN D [Concomitant]
  4. DOCUSATE SODIUM [Concomitant]
  5. VENLAFAXINE [Concomitant]
  6. FORTEO [Suspect]
     Dosage: 20 UG, QD
     Route: 058
     Dates: end: 20100901
  7. SYNTHROID [Concomitant]
  8. NORVASC [Concomitant]
  9. AMLODIPINE [Concomitant]
  10. FORTEO [Suspect]
     Indication: OSTEOPOROSIS
     Dosage: 20 UG, QD
     Route: 058
     Dates: start: 20100713
  11. FORTEO [Suspect]
     Dosage: 20 UG, QD
     Route: 058
     Dates: end: 20101201
  12. FORTEO [Suspect]
     Dosage: 20 UG, QD
     Route: 058
  13. CALCIUM [Concomitant]
  14. PANTOPRAZOLE [Concomitant]
  15. DOMPERIDONE [Concomitant]
  16. ALLOPURINOL [Concomitant]
  17. METOPROLOL TARTRATE [Concomitant]
  18. ELAVIL [Concomitant]
  19. OXAZEPAM [Concomitant]

REACTIONS (3)
  - OEDEMA PERIPHERAL [None]
  - PULMONARY OEDEMA [None]
  - DRUG DOSE OMISSION [None]
